FAERS Safety Report 20130132 (Version 1)
Quarter: 2021Q4

REPORT INFORMATION
  Report Type: Spontaneous
  Country: US (occurrence: US)
  Receive Date: 20211130
  Receipt Date: 20211130
  Transmission Date: 20220303
  Serious: Yes (Hospitalization, Other)
  Sender: FDA-Public Use
  Company Number: US-LUPIN PHARMACEUTICALS INC.-2021-23346

PATIENT
  Age: 82 Year
  Sex: Female

DRUGS (1)
  1. NITROFURANTOIN [Suspect]
     Active Substance: NITROFURANTOIN
     Indication: Cystitis
     Dosage: UNKNOWN, PRESCRIBED 10 DAYS BEFORE ADMISSION
     Route: 065

REACTIONS (3)
  - Eosinophilic pleural effusion [Recovered/Resolved]
  - Sepsis [Unknown]
  - Drug ineffective [Unknown]
